FAERS Safety Report 9348353 (Version 1)
Quarter: 2013Q2

REPORT INFORMATION
  Report Type: Spontaneous
  Country: US (occurrence: None)
  Receive Date: 20130613
  Receipt Date: 20130613
  Transmission Date: 20140414
  Serious: Yes (Death)
  Sender: FDA-Public Use
  Company Number: None

PATIENT
  Age: 91 Year
  Sex: Male

DRUGS (2)
  1. AVASTIN 1.25 MG GENENTECH [Suspect]
     Indication: AGE-RELATED MACULAR DEGENERATION
     Dosage: 1  EVERY 4-6 WEEKS  INTRAOCULAR
     Route: 031
     Dates: start: 20100313, end: 20130320
  2. EYLEA 2 MG REGENERON [Suspect]
     Indication: AGE-RELATED MACULAR DEGENERATION
     Dosage: 1  EVERY 4-8 WEEKS  INTRAOCULAR
     Route: 031
     Dates: start: 20130422, end: 20130422

REACTIONS (1)
  - Death [None]
